FAERS Safety Report 17278018 (Version 1)
Quarter: 2020Q1

REPORT INFORMATION
  Report Type: Spontaneous
  Country: ES (occurrence: ES)
  Receive Date: 20200116
  Receipt Date: 20200116
  Transmission Date: 20200409
  Serious: Yes (Hospitalization)
  Sender: FDA-Public Use
  Company Number: ES-MYLANLABS-2020M1004312

PATIENT
  Age: 74 Year
  Sex: Female

DRUGS (6)
  1. PANTOPRAZOL                        /01263201/ [Concomitant]
     Active Substance: PANTOPRAZOLE
     Indication: PROPHYLAXIS AGAINST GASTROINTESTINAL ULCER
     Dosage: 40 MG || DOSIS UNIDAD FRECUENCIA: 40 MG-MILIGRAMOS || DOSIS POR TOMA: 40 MG-MILIGRAMOS
     Route: 042
     Dates: start: 20140327
  2. VANCOMYCIN [Suspect]
     Active Substance: VANCOMYCIN
     Indication: ABDOMINAL SEPSIS
     Dosage: 1 GRAM, BID (12 HOURS)
     Route: 042
     Dates: start: 20140327, end: 20140329
  3. ENOXAPARINA [Concomitant]
     Active Substance: ENOXAPARIN
     Indication: THROMBOSIS PROPHYLAXIS
     Dosage: 40 MG || DOSIS UNIDAD FRECUENCIA: 40 MG-MILIGRAMOS || DOSIS POR TOMA: 40 MG-MILIGRAMOS || N
     Route: 058
     Dates: start: 20140327
  4. AZTREONAM. [Suspect]
     Active Substance: AZTREONAM
     Indication: ABDOMINAL SEPSIS
     Dosage: 2 GRAM, Q8H
     Route: 042
     Dates: start: 20140327, end: 20140401
  5. METRONIDAZOL                       /00012501/ [Suspect]
     Active Substance: METRONIDAZOLE
     Indication: ABDOMINAL SEPSIS
     Dosage: 500 MILLIGRAM, Q8H
     Route: 042
     Dates: start: 20140327, end: 20140401
  6. PARACETAMOL [Concomitant]
     Active Substance: ACETAMINOPHEN
     Indication: PAIN
     Dosage: 1GR/8H || DOSIS UNIDAD FRECUENCIA: 3 G-GRAMOS || DOSIS POR TOMA: 1 G-GRAMOS || N TOMAS POR
     Route: 042

REACTIONS (1)
  - Acute generalised exanthematous pustulosis [Recovered/Resolved]

NARRATIVE: CASE EVENT DATE: 20140329
